FAERS Safety Report 9056139 (Version 1)
Quarter: 2013Q1

REPORT INFORMATION
  Report Type: Spontaneous
  Country: US (occurrence: US)
  Receive Date: 20130205
  Receipt Date: 20130205
  Transmission Date: 20140127
  Serious: Yes (Disabling)
  Sender: FDA-Public Use
  Company Number: PHEH2013US002641

PATIENT
  Sex: Female

DRUGS (3)
  1. EXJADE [Suspect]
     Indication: MYELODYSPLASTIC SYNDROME
     Dosage: UNK UKN, UNK
  2. EXJADE [Suspect]
     Dosage: UNK UKN, UNK
  3. REVLIMID [Suspect]
     Indication: PLASMA CELL MYELOMA
     Dosage: 5 MG, DAILY
     Route: 048
     Dates: start: 20120808

REACTIONS (5)
  - Sinusitis [Unknown]
  - Sinus congestion [Unknown]
  - Cough [Unknown]
  - Diarrhoea [Unknown]
  - Pruritus [Unknown]
